FAERS Safety Report 12057802 (Version 1)
Quarter: 2016Q1

REPORT INFORMATION
  Report Type: Report from Study
  Country: US (occurrence: US)
  Receive Date: 20160210
  Receipt Date: 20160210
  Transmission Date: 20160526
  Serious: Yes (Other)
  Sender: FDA-Public Use
  Company Number: US-AMGEN-USASL2016015210

PATIENT
  Age: 67 Year
  Sex: Female

DRUGS (3)
  1. REMICADE [Concomitant]
     Active Substance: INFLIXIMAB
     Route: 065
  2. ORENCIA [Concomitant]
     Active Substance: ABATACEPT
     Route: 065
  3. ENBREL [Suspect]
     Active Substance: ETANERCEPT
     Indication: RHEUMATOID ARTHRITIS
     Dosage: UNK
     Route: 065
     Dates: start: 2002

REACTIONS (2)
  - Drug hypersensitivity [Unknown]
  - Lower respiratory tract infection [Unknown]
